FAERS Safety Report 8444899-0 (Version None)
Quarter: 2012Q2

REPORT INFORMATION
  Report Type: 
  Country: None (occurrence: None)
  Receive Date: 20120618
  Receipt Date: 20120612
  Transmission Date: 20120825
  Serious: Yes (Hospitalization, Other)
  Sender: FDA-Public Use
  Company Number: US-ROXANE LABORATORIES, INC.-2012-RO-01417RO

PATIENT
  Sex: Male
  Weight: 108 kg

DRUGS (9)
  1. FINASTERIDE [Concomitant]
     Indication: BENIGN PROSTATIC HYPERPLASIA
     Dosage: 5 MG
     Route: 048
     Dates: start: 20111013
  2. PREDNISONE [Suspect]
     Indication: NASOPHARYNGITIS
     Dosage: 20 MG
     Route: 048
     Dates: start: 20120223, end: 20120301
  3. PULMICORT [Concomitant]
     Indication: CHRONIC OBSTRUCTIVE PULMONARY DISEASE
     Dosage: 360 MCG
     Route: 055
     Dates: start: 20111106, end: 20120323
  4. INVESTIGATIONAL DRUG [Suspect]
     Indication: CHRONIC OBSTRUCTIVE PULMONARY DISEASE
     Route: 055
     Dates: start: 20111123, end: 20120301
  5. PREVACID [Concomitant]
     Indication: GASTROOESOPHAGEAL REFLUX DISEASE
     Dosage: 15 MG
     Route: 048
     Dates: start: 20010101
  6. FLUOCINONIDE [Concomitant]
     Indication: ROSACEA
     Route: 061
     Dates: start: 20060101
  7. ASPIRIN [Concomitant]
     Indication: CARDIOVASCULAR EVENT PROPHYLAXIS
     Dosage: 81 MG
     Route: 048
     Dates: start: 20010101
  8. SYNTHROID [Concomitant]
     Indication: HYPOTHYROIDISM
     Dosage: 125 MCG
     Route: 048
     Dates: start: 19910101
  9. DOXYCYCLINE [Suspect]
     Indication: PNEUMONIA
     Dosage: 100 MG
     Route: 048
     Dates: start: 20120301, end: 20120307

REACTIONS (3)
  - PNEUMONIA [None]
  - ANGINA PECTORIS [None]
  - SUPRAVENTRICULAR TACHYCARDIA [None]
